FAERS Safety Report 12612613 (Version 2)
Quarter: 2016Q3

REPORT INFORMATION
  Report Type: Spontaneous
  Country: AT (occurrence: AT)
  Receive Date: 20160801
  Receipt Date: 20160803
  Transmission Date: 20161109
  Serious: Yes (Death, Other)
  Sender: FDA-Public Use
  Company Number: AT-ALLERGAN-1639615

PATIENT
  Age: 60 Year
  Sex: Male
  Weight: 83 kg

DRUGS (13)
  1. MANDOKEF [Concomitant]
     Indication: PRODUCT USED FOR UNKNOWN INDICATION
  2. CLAFORAN [Concomitant]
     Active Substance: CEFOTAXIME SODIUM
     Indication: PRODUCT USED FOR UNKNOWN INDICATION
  3. PRENUTRISON [Suspect]
     Active Substance: DIETARY SUPPLEMENT
     Indication: PRODUCT USED FOR UNKNOWN INDICATION
     Dosage: 500 ML, UNK
     Route: 051
     Dates: start: 19870626, end: 19870627
  4. HEPARIN [Concomitant]
     Active Substance: HEPARIN SODIUM
     Indication: PRODUCT USED FOR UNKNOWN INDICATION
  5. RANITIDINE. [Concomitant]
     Active Substance: RANITIDINE
     Indication: PRODUCT USED FOR UNKNOWN INDICATION
     Dosage: UNK
     Dates: start: 19870603, end: 19870616
  6. DACORTIN [Concomitant]
     Active Substance: PREDNISONE
     Indication: PRODUCT USED FOR UNKNOWN INDICATION
  7. ULCOGANT [Suspect]
     Active Substance: SUCRALFATE
     Indication: ILL-DEFINED DISORDER
     Dosage: 6 G, QD
     Route: 065
     Dates: start: 19870617, end: 19870706
  8. NUTRISON [Suspect]
     Active Substance: DIETARY SUPPLEMENT
     Indication: PRODUCT USED FOR UNKNOWN INDICATION
     Dosage: 500 ML, UNK
     Route: 051
     Dates: start: 19870623, end: 19870627
  9. BRICANYL [Concomitant]
     Active Substance: TERBUTALINE SULFATE
     Indication: PRODUCT USED FOR UNKNOWN INDICATION
  10. LANITOP [Concomitant]
     Active Substance: METILDIGOXIN
     Indication: PRODUCT USED FOR UNKNOWN INDICATION
  11. BAYPEN [Concomitant]
     Active Substance: MEZLOCILLIN SODIUM
     Indication: PRODUCT USED FOR UNKNOWN INDICATION
  12. HYLAK [Concomitant]
     Indication: PRODUCT USED FOR UNKNOWN INDICATION
  13. ANTIBIOPHILUS [Concomitant]
     Indication: PRODUCT USED FOR UNKNOWN INDICATION
     Dosage: UNK
     Dates: start: 19870624, end: 19870706

REACTIONS (4)
  - Cardiopulmonary failure [Fatal]
  - Renal failure [Unknown]
  - Bezoar [Unknown]
  - Lung infection [Unknown]

NARRATIVE: CASE EVENT DATE: 1987
